FAERS Safety Report 14552903 (Version 2)
Quarter: 2018Q2

REPORT INFORMATION
  Report Type: Spontaneous
  Country: US (occurrence: US)
  Receive Date: 20180220
  Receipt Date: 20180417
  Transmission Date: 20180711
  Serious: Yes (Disabling, Other)
  Sender: FDA-Public Use
  Company Number: US-SA-2018SA040004

PATIENT
  Age: 36 Year
  Sex: Female
  Weight: 90.71 kg

DRUGS (2)
  1. FOLIC ACID. [Concomitant]
     Active Substance: FOLIC ACID
  2. AUBAGIO [Suspect]
     Active Substance: TERIFLUNOMIDE
     Route: 048
     Dates: start: 20161128, end: 20170427

REACTIONS (4)
  - Multiple sclerosis relapse [Not Recovered/Not Resolved]
  - Disability [Not Recovered/Not Resolved]
  - Unevaluable event [Unknown]
  - Rash [Not Recovered/Not Resolved]

NARRATIVE: CASE EVENT DATE: 2017
